FAERS Safety Report 8132779-X (Version None)
Quarter: 2012Q1

REPORT INFORMATION
  Report Type: 
  Country: None (occurrence: None)
  Receive Date: 20120208
  Receipt Date: 20120130
  Transmission Date: 20120608
  Serious: Yes (Other)
  Sender: FDA-Public Use
  Company Number: OSCN-NO-1202S-0012

PATIENT
  Age: 43 Year
  Sex: Female
  Weight: 100 kg

DRUGS (1)
  1. OMNISCAN [Suspect]
     Indication: PITUITARY TUMOUR BENIGN
     Dosage: 20 ML, SINGLE DOSE, INTRAVENOUS
     Route: 042
     Dates: start: 20120126, end: 20120126

REACTIONS (2)
  - VISION BLURRED [None]
  - VISUAL ACUITY REDUCED [None]
